FAERS Safety Report 17690139 (Version 10)
Quarter: 2020Q3

REPORT INFORMATION
  Report Type: Report from Study
  Country: IN (occurrence: IN)
  Receive Date: 20200421
  Receipt Date: 20200812
  Transmission Date: 20201102
  Serious: Yes (Other)
  Sender: FDA-Public Use
  Company Number: NVSC2020IN100459

PATIENT
  Age: 57 Year
  Sex: Female
  Weight: 87.8 kg

DRUGS (5)
  1. REMO [Suspect]
     Active Substance: MOSAPRIDE CITRATE
     Indication: PRODUCT USED FOR UNKNOWN INDICATION
     Route: 048
  2. GALVUS [Suspect]
     Active Substance: VILDAGLIPTIN
     Indication: DIABETES MELLITUS
     Dosage: 1 DF, QD
     Route: 048
  3. GALVUS MET [Suspect]
     Active Substance: METFORMIN HYDROCHLORIDE\VILDAGLIPTIN
     Indication: DIABETES MELLITUS
     Dosage: VILDAGLIPTIN 50MG/METFORMIN1000MG
     Route: 048
  4. GALVUS MET [Suspect]
     Active Substance: METFORMIN HYDROCHLORIDE\VILDAGLIPTIN
     Dosage: VILDAGLIPTIN 50MG/METFORMIN 500MG
     Route: 048
  5. GALVUS MET [Suspect]
     Active Substance: METFORMIN HYDROCHLORIDE\VILDAGLIPTIN
     Dosage: VILDAGLIPTIN 50MG/METFORMIN 850MG
     Route: 048

REACTIONS (22)
  - Fibromyalgia [Unknown]
  - Pain [Unknown]
  - Pain in extremity [Not Recovered/Not Resolved]
  - Hyperglycaemia [Unknown]
  - Glycosylated haemoglobin increased [Unknown]
  - Body mass index abnormal [Unknown]
  - Weight abnormal [Unknown]
  - Sleep disorder [Unknown]
  - Fatigue [Unknown]
  - Hypertension [Unknown]
  - Arthralgia [Unknown]
  - Asthenia [Unknown]
  - Blood glucose increased [Unknown]
  - Insomnia [Not Recovered/Not Resolved]
  - Dizziness [Not Recovered/Not Resolved]
  - Paraesthesia [Unknown]
  - Hunger [Not Recovered/Not Resolved]
  - Pruritus [Unknown]
  - Hypothyroidism [Unknown]
  - Back pain [Unknown]
  - Gait disturbance [Unknown]
  - Decreased appetite [Unknown]

NARRATIVE: CASE EVENT DATE: 20200408
